FAERS Safety Report 6317086-X (Version None)
Quarter: 2009Q3

REPORT INFORMATION
  Report Type: 
  Country: None (occurrence: None)
  Receive Date: 20090820
  Receipt Date: 20090813
  Transmission Date: 20100115
  Serious: Yes (Other)
  Sender: FDA-Public Use
  Company Number: US-AMGEN-QUU360110

PATIENT
  Sex: Female

DRUGS (2)
  1. ARANESP [Suspect]
     Indication: RENAL FAILURE CHRONIC
     Route: 058
  2. EPOGEN [Suspect]
     Indication: DIALYSIS
     Dates: end: 19990101

REACTIONS (4)
  - EYELID PTOSIS [None]
  - FEELING ABNORMAL [None]
  - HORDEOLUM [None]
  - HYPOAESTHESIA FACIAL [None]
